FAERS Safety Report 17371289 (Version 1)
Quarter: 2020Q1

REPORT INFORMATION
  Report Type: Spontaneous
  Country: DK (occurrence: DK)
  Receive Date: 20200205
  Receipt Date: 20200205
  Transmission Date: 20200409
  Serious: Yes (Hospitalization)
  Sender: FDA-Public Use
  Company Number: DK-TEVA-2020-DK-1181222

PATIENT
  Age: 77 Year
  Sex: Female

DRUGS (8)
  1. ELIQUIS [Concomitant]
     Active Substance: APIXABAN
     Indication: THROMBOSIS PROPHYLAXIS
     Dosage: STRENGTH: 5 MG, 10 MG PER DAY
     Route: 048
     Dates: start: 201809
  2. MORPHINE [Concomitant]
     Active Substance: MORPHINE
     Indication: PAIN
     Dosage: STRENGTH: 10 MG, DOSAGE: 1 TABLET AS NEEDED NO MORE THAN 2 TIMES DAILY
     Route: 048
     Dates: start: 201811
  3. PANODIL [Concomitant]
     Active Substance: ACETAMINOPHEN
     Indication: PAIN
     Dosage: STRENGTH: 665 MG, DOSAGE: 2 TABLETS AT BEDTIME + 2 TABLETS IF NEEDED MAX 2 TIMES DAILY
     Route: 048
     Dates: start: 201512
  4. GABAPENTIN. [Concomitant]
     Active Substance: GABAPENTIN
     Indication: NEURALGIA
     Dosage: STRENGTH: 300 MG, 2700 MG PER DAY
     Route: 048
     Dates: start: 201708
  5. ATORVASTATIN [Suspect]
     Active Substance: ATORVASTATIN
     Indication: CARDIOVASCULAR EVENT PROPHYLAXIS
     Dosage: STRENGTH: 40 MG
     Route: 048
     Dates: start: 201809, end: 20200110
  6. CENTYL MED KALIUMKLORID [Concomitant]
     Active Substance: BENDROFLUMETHIAZIDE\POTASSIUM CHLORIDE
     Indication: HYPERTENSION
     Dosage: STRENGTH: 2.5 + 573 MG
     Route: 048
     Dates: start: 201511
  7. PANTOPRAZOLE [Concomitant]
     Active Substance: PANTOPRAZOLE
     Indication: GASTRIC ULCER
     Dosage: STRENGTH: 40 MG
     Route: 048
     Dates: start: 201809
  8. CONTALGIN [Concomitant]
     Active Substance: MORPHINE SULFATE
     Indication: PAIN
     Dosage: STRENGTH: 10 MG, 30 MG PER DAY
     Route: 048
     Dates: start: 201708

REACTIONS (2)
  - Blood creatinine increased [Recovering/Resolving]
  - Rhabdomyolysis [Recovering/Resolving]

NARRATIVE: CASE EVENT DATE: 202001
